FAERS Safety Report 5753958-2 (Version None)
Quarter: 2008Q2

REPORT INFORMATION
  Report Type: 
  Country: None (occurrence: None)
  Receive Date: 20080530
  Receipt Date: 20080516
  Transmission Date: 20081010
  Serious: Yes (Other)
  Sender: FDA-Public Use
  Company Number: BE-GENENTECH-261230

PATIENT
  Age: 92 Year
  Sex: Female

DRUGS (3)
  1. LUCENTIS [Suspect]
     Indication: DRUG USE FOR UNKNOWN INDICATION
     Dosage: UNK, 1/MONTH
     Dates: start: 20080101, end: 20080318
  2. SIMVASTATIN [Concomitant]
     Indication: DRUG USE FOR UNKNOWN INDICATION
  3. ANTIHYPERTENSIVE [Concomitant]
     Indication: HYPERTENSION

REACTIONS (4)
  - HEADACHE [None]
  - MALAISE [None]
  - SHOCK [None]
  - TRANSIENT ISCHAEMIC ATTACK [None]
